FAERS Safety Report 9419230 (Version 1)
Quarter: 2013Q3

REPORT INFORMATION
  Report Type: Spontaneous
  Country: US (occurrence: US)
  Receive Date: 20130725
  Receipt Date: 20130725
  Transmission Date: 20140515
  Serious: No
  Sender: FDA-Public Use
  Company Number: US-GLAXOSMITHKLINE-A0980482A

PATIENT
  Age: 64 Year
  Sex: Male

DRUGS (21)
  1. LAMICTAL XR [Suspect]
     Indication: NEUROPATHY PERIPHERAL
     Dosage: 25MG PER DAY
     Route: 048
     Dates: start: 20120516
  2. LEVETIRACETAM [Suspect]
     Dosage: 4TAB PER DAY
     Route: 048
  3. INSULIN [Concomitant]
  4. INSPRA [Concomitant]
  5. BYSTOLIC [Concomitant]
  6. AGGRENOX [Concomitant]
  7. LASIX [Concomitant]
  8. AVAPRO [Concomitant]
  9. ZOCOR [Concomitant]
  10. FOLIC ACID [Concomitant]
  11. DEXILANT [Concomitant]
  12. ASTELIN [Concomitant]
     Route: 045
  13. FLONASE [Concomitant]
     Route: 045
  14. XYZAL [Concomitant]
  15. CELEBREX [Concomitant]
  16. WELLBUTRIN XL [Concomitant]
     Route: 048
  17. ARICEPT [Concomitant]
  18. NAMENDA [Concomitant]
  19. SYNTHROID [Concomitant]
  20. I-VITE [Concomitant]
  21. LUNESTA [Concomitant]

REACTIONS (4)
  - Insomnia [Not Recovered/Not Resolved]
  - Neuralgia [Unknown]
  - Abnormal dreams [Unknown]
  - Off label use [Unknown]
